FAERS Safety Report 10815284 (Version 2)
Quarter: 2015Q1

REPORT INFORMATION
  Report Type: Spontaneous
  Country: GB (occurrence: GB)
  Receive Date: 20150218
  Receipt Date: 20150218
  Transmission Date: 20150721
  Serious: Yes (Hospitalization)
  Sender: FDA-Public Use
  Company Number: PHHY2015GB016405

PATIENT
  Age: 18 Year
  Sex: Male

DRUGS (3)
  1. QUETIAPINE [Suspect]
     Active Substance: QUETIAPINE
     Indication: ATTENTION DEFICIT/HYPERACTIVITY DISORDER
     Route: 065
  2. QUETIAPINE [Suspect]
     Active Substance: QUETIAPINE
     Indication: BIPOLAR DISORDER
  3. METHYLPHENIDATE [Suspect]
     Active Substance: METHYLPHENIDATE
     Indication: ATTENTION DEFICIT/HYPERACTIVITY DISORDER
     Route: 065

REACTIONS (8)
  - Chest crushing [Unknown]
  - Myocarditis [Unknown]
  - Chest pain [Unknown]
  - Ventricular dysfunction [Unknown]
  - Nausea [Unknown]
  - Electrocardiogram ST segment depression [Unknown]
  - Electrocardiogram ST segment elevation [Unknown]
  - Vomiting [Unknown]
